FAERS Safety Report 6188383-6 (Version None)
Quarter: 2009Q2

REPORT INFORMATION
  Report Type: 
  Country: None (occurrence: None)
  Receive Date: 20090513
  Receipt Date: 20090508
  Transmission Date: 20091009
  Serious: Yes (Other)
  Sender: FDA-Public Use
  Company Number: JP-JNJFOC-20090502019

PATIENT

DRUGS (3)
  1. ITRIZOLE [Suspect]
     Indication: DRUG USE FOR UNKNOWN INDICATION
     Route: 048
  2. CALCIUM [Concomitant]
     Indication: OSTEOPOROSIS
     Route: 065
  3. BISPHOSPHONATE [Concomitant]
     Indication: OSTEOPOROSIS
     Route: 065

REACTIONS (1)
  - HALLUCINATION [None]
